FAERS Safety Report 9805438 (Version 2)
Quarter: 2014Q1

REPORT INFORMATION
  Report Type: Spontaneous
  Country: US (occurrence: US)
  Receive Date: 20140109
  Receipt Date: 20140120
  Transmission Date: 20141002
  Serious: Yes (Death)
  Sender: FDA-Public Use
  Company Number: US-AMGEN-USASP2014000908

PATIENT
  Age: 82 Year
  Sex: Male
  Weight: 70.84 kg

DRUGS (10)
  1. NPLATE [Suspect]
     Indication: IMMUNE THROMBOCYTOPENIC PURPURA
     Dosage: 250 MUG, QWK
     Route: 058
     Dates: start: 20120718, end: 20131211
  2. AMIODARONE [Concomitant]
     Dosage: 200 MG, QD
     Route: 048
  3. LIPITOR [Concomitant]
     Dosage: 20 MG, QD
     Route: 048
  4. LISINOPRIL [Concomitant]
     Dosage: 5 MG, BID
     Route: 048
  5. LOPRESSOR [Concomitant]
     Dosage: 100 MG, BID
     Route: 048
  6. MECLIZINE                          /00072801/ [Concomitant]
     Dosage: 12.5 MG, TID
     Route: 048
  7. MUCINEX [Concomitant]
     Dosage: 600 MG, BID
     Route: 048
  8. PREDNISONE [Concomitant]
     Dosage: 40 MG, QD
  9. METOPROLOL [Concomitant]
     Dosage: 100 MG, Q12H
  10. SPIRIVA [Concomitant]

REACTIONS (1)
  - Cardiovascular disorder [Fatal]
